FAERS Safety Report 24743618 (Version 1)
Quarter: 2024Q4

REPORT INFORMATION
  Report Type: Spontaneous
  Country: US (occurrence: None)
  Receive Date: 20241216
  Receipt Date: 20241216
  Transmission Date: 20250114
  Serious: No
  Sender: Public
  Company Number: None

PATIENT
  Age: 31 Year
  Sex: Female
  Weight: 68 kg

DRUGS (3)
  1. GAMMAGARD [Suspect]
     Active Substance: HUMAN IMMUNOGLOBULIN G
     Indication: Immunodeficiency
     Dosage: OTHER FREQUENCY : WEEKLY;?
     Route: 058
  2. GAMMAGARD [Suspect]
     Active Substance: HUMAN IMMUNOGLOBULIN G
     Indication: Ehlers-Danlos syndrome
  3. GAMMAGARD [Suspect]
     Active Substance: HUMAN IMMUNOGLOBULIN G
     Indication: Ehlers-Danlos syndrome

REACTIONS (2)
  - Product quality issue [None]
  - Unevaluable event [None]

NARRATIVE: CASE EVENT DATE: 20241206
